FAERS Safety Report 8488036-5 (Version None)
Quarter: 2012Q3

REPORT INFORMATION
  Report Type: 
  Country: None (occurrence: None)
  Receive Date: 20120705
  Receipt Date: 20120626
  Transmission Date: 20120928
  Serious: Yes (Death, Other)
  Sender: FDA-Public Use
  Company Number: GB-CELGENEUS-167-21880-12063637

PATIENT
  Sex: Male

DRUGS (2)
  1. DEXAMETHASONE SODIUM PHOSPHATE [Concomitant]
     Indication: MULTIPLE MYELOMA
     Route: 048
  2. REVLIMID [Suspect]
     Indication: MULTIPLE MYELOMA
     Route: 048

REACTIONS (14)
  - PNEUMONIA [None]
  - FULL BLOOD COUNT DECREASED [None]
  - NERVE INJURY [None]
  - INFLUENZA [None]
  - PYREXIA [None]
  - DRY SKIN [None]
  - MUSCLE SPASMS [None]
  - BACK PAIN [None]
  - LOWER RESPIRATORY TRACT INFECTION [None]
  - IMPAIRED HEALING [None]
  - NO THERAPEUTIC RESPONSE [None]
  - MONOCLONAL IMMUNOGLOBULIN PRESENT [None]
  - BONE PAIN [None]
  - CIRCULATORY COLLAPSE [None]
